FAERS Safety Report 7427888-4 (Version None)
Quarter: 2011Q2

REPORT INFORMATION
  Report Type: 
  Country: None (occurrence: None)
  Receive Date: 20110418
  Receipt Date: 20110418
  Transmission Date: 20111010
  Serious: Yes (Other)
  Sender: FDA-Public Use
  Company Number: None

PATIENT
  Sex: Female
  Weight: 52.6173 kg

DRUGS (10)
  1. VITAMIN D [Concomitant]
  2. SENA PLUS [Concomitant]
  3. MAALOX [Concomitant]
  4. PROMETRIUM [Concomitant]
  5. TUMS [Concomitant]
  6. ESTRADIOL [Concomitant]
  7. ACYCLOVIR [Concomitant]
  8. RITALIN [Concomitant]
  9. WELLBUTRIN [Concomitant]
  10. PRILOSEC [Suspect]
     Indication: GASTRITIS
     Dosage: 1 PILL QAM PO 5 1/2 WEEKS
     Route: 048
     Dates: start: 20110307, end: 20110413

REACTIONS (1)
  - BLOOD PRESSURE INCREASED [None]
